FAERS Safety Report 13460920 (Version 1)
Quarter: 2017Q2

REPORT INFORMATION
  Report Type: Spontaneous
  Country: US (occurrence: US)
  Receive Date: 20170419
  Receipt Date: 20170419
  Transmission Date: 20170830
  Serious: Yes (Death, Life-Threatening, Hospitalization)
  Sender: FDA-Public Use
  Company Number: None

PATIENT
  Age: 81 Year
  Sex: Female
  Weight: 54.7 kg

DRUGS (1)
  1. DAPSONE. [Suspect]
     Active Substance: DAPSONE
     Indication: SCLERODERMA
     Route: 048
     Dates: start: 20161114, end: 20170317

REACTIONS (7)
  - Staphylococcal bacteraemia [None]
  - Diabetic ketoacidosis [None]
  - Respiratory failure [None]
  - Respiratory distress [None]
  - General physical health deterioration [None]
  - Cardiac failure congestive [None]
  - Pneumonia [None]

NARRATIVE: CASE EVENT DATE: 20170317
